FAERS Safety Report 7657832-6 (Version None)
Quarter: 2011Q3

REPORT INFORMATION
  Report Type: 
  Country: None (occurrence: None)
  Receive Date: 20110805
  Receipt Date: 20110726
  Transmission Date: 20111222
  Serious: No
  Sender: FDA-Public Use
  Company Number: US-BIOGENIDEC-2011BI009202

PATIENT
  Sex: Male

DRUGS (1)
  1. TYSABRI [Suspect]
     Indication: MULTIPLE SCLEROSIS
     Route: 042
     Dates: start: 20110208

REACTIONS (7)
  - DIPLOPIA [None]
  - DIZZINESS [None]
  - BURNING SENSATION [None]
  - HYPOTONIA [None]
  - SENSATION OF HEAVINESS [None]
  - COLOUR BLINDNESS ACQUIRED [None]
  - MUSCLE SPASMS [None]
